FAERS Safety Report 9828372 (Version 1)
Quarter: 2014Q1

REPORT INFORMATION
  Report Type: Report from Study
  Country: ES (occurrence: ES)
  Receive Date: 20140117
  Receipt Date: 20140117
  Transmission Date: 20141002
  Serious: Yes (Death)
  Sender: FDA-Public Use
  Company Number: ES-GLAXOSMITHKLINE-B0959721A

PATIENT
  Age: 70 Year
  Sex: Male
  Weight: 106 kg

DRUGS (3)
  1. DABRAFENIB [Suspect]
     Indication: METASTATIC MALIGNANT MELANOMA
     Route: 048
     Dates: start: 20131230, end: 20140102
  2. TRAMETINIB [Suspect]
     Indication: METASTATIC MALIGNANT MELANOMA
     Route: 048
     Dates: start: 20131230, end: 20140102
  3. RIVAROXABAN [Concomitant]
     Indication: ATRIAL FIBRILLATION
     Dosage: 10MG PER DAY
     Route: 048
     Dates: start: 20130102

REACTIONS (6)
  - Haemorrhage intracranial [Fatal]
  - Hemiparesis [Unknown]
  - Aphasia [Unknown]
  - Depressed level of consciousness [Unknown]
  - Convulsion [Unknown]
  - Status epilepticus [Unknown]
